FAERS Safety Report 24730981 (Version 1)
Quarter: 2024Q4

REPORT INFORMATION
  Report Type: Spontaneous
  Country: US (occurrence: None)
  Receive Date: 20241212
  Receipt Date: 20241212
  Transmission Date: 20250115
  Serious: Yes (Other)
  Sender: Public
  Company Number: None

PATIENT
  Sex: Male

DRUGS (8)
  1. VELTASSA [Suspect]
     Active Substance: PATIROMER
     Indication: Hyperkalaemia
     Dosage: FREQ: DISSOLVE CONTENTS OF 1 PACKET INTO 1/3 CUP OF WATER AND DRINK FULL AMOUNT ONCE DAILY AS DIRECT
     Route: 048
     Dates: start: 20180124
  2. ALKA-SELTZER [Concomitant]
     Active Substance: ANHYDROUS CITRIC ACID\ASPIRIN\SODIUM BICARBONATE
  3. AT0RVASTATIN [Concomitant]
  4. FINASTERIDE [Concomitant]
     Active Substance: FINASTERIDE
  5. FUR0SEMIDE [Concomitant]
  6. LID0CAINE [Concomitant]
  7. N0V0L0G [Concomitant]
  8. 0XYBUTYNIN [Concomitant]

REACTIONS (1)
  - Lung neoplasm malignant [None]
